FAERS Safety Report 7879800-1 (Version None)
Quarter: 2011Q4

REPORT INFORMATION
  Report Type: 
  Country: None (occurrence: None)
  Receive Date: 20111101
  Receipt Date: 20100602
  Transmission Date: 20120403
  Serious: No
  Sender: FDA-Public Use
  Company Number: US-BAYER-201024807NA

PATIENT
  Sex: Female

DRUGS (3)
  1. AVELOX [Suspect]
     Indication: RASH
  2. IBUPROFEN (ADVIL) [Concomitant]
  3. AVELOX [Suspect]
     Indication: SKIN INFECTION
     Dosage: 400 MG, ONCE
     Route: 048
     Dates: start: 20100503, end: 20100503

REACTIONS (2)
  - URTICARIA [None]
  - SWELLING [None]
